FAERS Safety Report 8062872-1 (Version None)
Quarter: 2012Q1

REPORT INFORMATION
  Report Type: 
  Country: None (occurrence: None)
  Receive Date: 20120123
  Receipt Date: 20120119
  Transmission Date: 20120608
  Serious: Yes (Death)
  Sender: FDA-Public Use
  Company Number: DE-JNJFOC-20120100355

PATIENT
  Sex: Male

DRUGS (7)
  1. XEPLION [Suspect]
     Indication: PRODUCT USED FOR UNKNOWN INDICATION
     Route: 030
     Dates: start: 20111220
  2. VALERIAN [Concomitant]
     Route: 065
  3. LORAZEPAM [Concomitant]
     Route: 065
  4. RISPERDAL [Suspect]
     Route: 048
     Dates: start: 20111125, end: 20111206
  5. XEPLION [Suspect]
     Route: 030
     Dates: start: 20110929
  6. AKINETON [Concomitant]
     Indication: HYPOKINESIA
     Route: 065
  7. RISPERDAL [Suspect]
     Indication: PRODUCT USED FOR UNKNOWN INDICATION
     Route: 048
     Dates: start: 20111207, end: 20111223

REACTIONS (2)
  - RESTLESSNESS [None]
  - MYOCARDIAL INFARCTION [None]
